FAERS Safety Report 14906162 (Version 2)
Quarter: 2018Q2

REPORT INFORMATION
  Report Type: Spontaneous
  Country: US (occurrence: US)
  Receive Date: 20180517
  Receipt Date: 20180614
  Transmission Date: 20180711
  Serious: No
  Sender: FDA-Public Use
  Company Number: US-SA-2018SA114710

PATIENT
  Age: 87 Year
  Sex: Female
  Weight: 88.44 kg

DRUGS (1)
  1. LANTUS [Suspect]
     Active Substance: INSULIN GLARGINE
     Indication: TYPE 2 DIABETES MELLITUS
     Dosage: 12 IU,QD
     Route: 051
     Dates: start: 20180108

REACTIONS (4)
  - Complication associated with device [Unknown]
  - Fractured coccyx [Unknown]
  - Fall [Unknown]
  - Confusional state [Unknown]

NARRATIVE: CASE EVENT DATE: 201804
